FAERS Safety Report 11797869 (Version 2)
Quarter: 2016Q1

REPORT INFORMATION
  Report Type: Spontaneous
  Country: FI (occurrence: FI)
  Receive Date: 20151203
  Receipt Date: 20160118
  Transmission Date: 20160525
  Serious: Yes (Disabling)
  Sender: FDA-Public Use
  Company Number: FI-009507513-1511FIN013542

PATIENT
  Age: 26 Year
  Sex: Female

DRUGS (1)
  1. NEXPLANON [Suspect]
     Active Substance: ETONOGESTREL
     Dosage: UNK
     Route: 059
     Dates: start: 20151103

REACTIONS (11)
  - Vertigo [Not Recovered/Not Resolved]
  - Narcolepsy [Not Recovered/Not Resolved]
  - Cataplexy [Recovering/Resolving]
  - Fatigue [Not Recovered/Not Resolved]
  - Neurological symptom [Not Recovered/Not Resolved]
  - Memory impairment [Not Recovered/Not Resolved]
  - Arthropathy [Not Recovered/Not Resolved]
  - Hypersensitivity [Unknown]
  - Dyskinesia [Not Recovered/Not Resolved]
  - Hypotonia [Not Recovered/Not Resolved]
  - Headache [Not Recovered/Not Resolved]

NARRATIVE: CASE EVENT DATE: 20151103
